FAERS Safety Report 4699389-8 (Version None)
Quarter: 2005Q2

REPORT INFORMATION
  Report Type: 
  Country: None (occurrence: None)
  Receive Date: 20050622
  Receipt Date: 20050607
  Transmission Date: 20051028
  Serious: Yes (Life-Threatening)
  Sender: FDA-Public Use
  Company Number: 05H-056-0300465-00

PATIENT
  Age: 66 Year
  Sex: Male

DRUGS (19)
  1. IOPAMIDOL INJECTION [Suspect]
     Indication: SCAN WITH CONTRAST
     Dosage: 90 + 100 ML, ONCE, INTRAVENOUS
     Route: 042
     Dates: start: 20050223, end: 20050223
  2. IOPAMIDOL INJECTION [Suspect]
     Indication: SCAN WITH CONTRAST
     Dosage: 90 + 100 ML, ONCE, INTRAVENOUS
     Route: 042
     Dates: start: 20050310, end: 20050310
  3. PANTOPRAZOLE SODIUM [Suspect]
     Indication: DRUG USE FOR UNKNOWN INDICATION
     Dosage: 40 MG, PER ORAL
     Route: 048
     Dates: start: 20050310, end: 20050326
  4. AUGMENTIN '125' [Suspect]
     Indication: LUNG INFECTION
     Dosage: PER ORAL
     Route: 048
     Dates: start: 20050308, end: 20050321
  5. OFLOXACIN [Suspect]
     Indication: DRUG USE FOR UNKNOWN INDICATION
     Dosage: PER ORAL INTRAGASTRAL
     Route: 048
     Dates: start: 20050308, end: 20050321
  6. ATARAX [Suspect]
     Indication: DRUG USE FOR UNKNOWN INDICATION
     Dosage: DAILY, PER ORAL INTRAGASTRAL
     Route: 048
     Dates: start: 20050310
  7. ALLOPURINOL [Suspect]
     Indication: DRUG USE FOR UNKNOWN INDICATION
     Dosage: DAILY, PER ORAL
     Route: 048
  8. AMOXICILLIN [Concomitant]
  9. BARIUM SULFATE (BARIUM SULFATE) [Concomitant]
  10. ACETAMINOPHEN [Concomitant]
  11. PRAVASTATIN [Concomitant]
  12. PERINDOPRIL (PERINDOPRIL) [Concomitant]
  13. FORLAX (MACROGOL) [Concomitant]
  14. EDUCTYL (EDUCTYL) [Concomitant]
  15. DUROGESIC (FENTANYL) [Concomitant]
  16. LOVENOX [Concomitant]
  17. CORTANCYL (PREDNISONE) [Concomitant]
  18. MORPHINE SULFATE [Concomitant]
  19. NUTRISON (NUTRISON) [Concomitant]

REACTIONS (5)
  - ATRIAL FIBRILLATION [None]
  - GENERAL PHYSICAL HEALTH DETERIORATION [None]
  - INFECTION [None]
  - LUNG DISORDER [None]
  - TOXIC EPIDERMAL NECROLYSIS [None]
